FAERS Safety Report 16123745 (Version 3)
Quarter: 2022Q2

REPORT INFORMATION
  Report Type: Spontaneous
  Country: IT (occurrence: IT)
  Receive Date: 20190327
  Receipt Date: 20220615
  Transmission Date: 20220721
  Serious: Yes (Hospitalization)
  Sender: FDA-Public Use
  Company Number: IT-CHIESI-2018CHF03381

PATIENT
  Age: 7 Year
  Sex: Male

DRUGS (6)
  1. AMOXICILLIN\CLAVULANIC ACID [Suspect]
     Active Substance: AMOXICILLIN\CLAVULANIC ACID
     Indication: Ear infection
     Dosage: UNK
  2. ACETAMINOPHEN [Suspect]
     Active Substance: ACETAMINOPHEN
     Indication: Ear infection
     Dosage: UNK
  3. CLARITHROMYCIN [Suspect]
     Active Substance: CLARITHROMYCIN
     Indication: Ear infection
     Dosage: UNK
  4. MORNIFLUMATE [Suspect]
     Active Substance: MORNIFLUMATE
     Indication: Ear infection
     Dosage: UNK
  5. ANTIPYRINE\PROCAINE [Suspect]
     Active Substance: ANTIPYRINE\PROCAINE
     Indication: Ear infection
     Dosage: UNK
  6. NIFLUMIC ACID [Suspect]
     Active Substance: NIFLUMIC ACID
     Indication: Ear infection
     Dosage: UNK

REACTIONS (1)
  - Vasculitis [Unknown]
